FAERS Safety Report 23221277 (Version 1)
Quarter: 2023Q4

REPORT INFORMATION
  Report Type: Spontaneous
  Country: AU (occurrence: AU)
  Receive Date: 20231123
  Receipt Date: 20231123
  Transmission Date: 20240109
  Serious: Yes (Hospitalization)
  Sender: FDA-Public Use
  Company Number: AU-GILEAD-2023-0651840

PATIENT
  Age: 23 Year
  Sex: Male

DRUGS (1)
  1. TRUVADA [Suspect]
     Active Substance: EMTRICITABINE\TENOFOVIR DISOPROXIL FUMARATE
     Indication: Viral infection
     Dosage: 1 DOSAGE FORM, QD (300 MG/ 200 MG)
     Route: 065
     Dates: start: 20221027, end: 20221027

REACTIONS (8)
  - Anorectal discomfort [Recovering/Resolving]
  - Genital discomfort [Recovering/Resolving]
  - Genital pain [Recovering/Resolving]
  - Proctalgia [Recovering/Resolving]
  - Pruritus [Recovering/Resolving]
  - Scrotal pain [Recovering/Resolving]
  - Scrotal discomfort [Recovering/Resolving]
  - Off label use [Recovered/Resolved]

NARRATIVE: CASE EVENT DATE: 20221027
